FAERS Safety Report 7341003-7 (Version None)
Quarter: 2011Q1

REPORT INFORMATION
  Report Type: 
  Country: None (occurrence: None)
  Receive Date: 20110309
  Receipt Date: 20110127
  Transmission Date: 20110831
  Serious: No
  Sender: FDA-Public Use
  Company Number: US-ABBOTT-11P-163-0701025-00

PATIENT
  Sex: Female
  Weight: 61.29 kg

DRUGS (3)
  1. LUPRON DEPOT [Suspect]
     Indication: ENDOMETRIOSIS
     Route: 050
     Dates: start: 20080901, end: 20080901
  2. LUPRON DEPOT [Suspect]
     Route: 050
     Dates: start: 20090201, end: 20090201
  3. LUPRON DEPOT [Suspect]
     Route: 050
     Dates: start: 20100201, end: 20100301

REACTIONS (3)
  - MENSTRUATION IRREGULAR [None]
  - HYPERHIDROSIS [None]
  - MOOD SWINGS [None]
